FAERS Safety Report 9562543 (Version 1)
Quarter: 2013Q3

REPORT INFORMATION
  Report Type: Spontaneous
  Country: DE (occurrence: DE)
  Receive Date: 20130927
  Receipt Date: 20130927
  Transmission Date: 20140515
  Serious: Yes (Life-Threatening, Hospitalization)
  Sender: FDA-Public Use
  Company Number: DE-B.I. PHARMACEUTICALS,INC./RIDGEFIELD-2013-BI-30088DE

PATIENT
  Age: 77 Year
  Sex: Female
  Weight: 84 kg

DRUGS (16)
  1. PRADAXA [Suspect]
     Indication: INFARCTION
     Dosage: 300 MG
     Route: 048
     Dates: start: 201307, end: 20130905
  2. PRADAXA [Suspect]
     Indication: ATRIAL FIBRILLATION
  3. PRADAXA [Suspect]
     Indication: HYPERTENSION
  4. PRADAXA [Suspect]
     Indication: HYPERCHOLESTEROLAEMIA
  5. PRADAXA [Suspect]
     Indication: BLADDER CANCER
  6. METOPROLOL [Concomitant]
     Indication: INFARCTION
     Route: 048
  7. METOPROLOL [Concomitant]
     Indication: ATRIAL FIBRILLATION
  8. METOPROLOL [Concomitant]
     Indication: HYPERTENSION
  9. METOPROLOL [Concomitant]
     Indication: HYPERCHOLESTEROLAEMIA
  10. METOPROLOL [Concomitant]
     Indication: BLADDER CANCER
  11. SIMVASTATIN [Concomitant]
     Indication: INFARCTION
     Route: 048
     Dates: end: 20130905
  12. SIMVASTATIN [Concomitant]
     Indication: ATRIAL FIBRILLATION
  13. SIMVASTATIN [Concomitant]
     Indication: HYPERTENSION
  14. SIMVASTATIN [Concomitant]
     Indication: HYPERCHOLESTEROLAEMIA
  15. SIMVASTATIN [Concomitant]
     Indication: BLADDER CANCER
  16. ALLOPURINOL [Concomitant]
     Route: 048
     Dates: end: 20130905

REACTIONS (1)
  - Leukopenia [Recovered/Resolved]
